FAERS Safety Report 4936556-X (Version None)
Quarter: 2006Q1

REPORT INFORMATION
  Report Type: 
  Country: None (occurrence: None)
  Receive Date: 20060307
  Receipt Date: 20060224
  Transmission Date: 20060701
  Serious: Yes (Life-Threatening)
  Sender: FDA-Public Use
  Company Number: DE-MERCK-0603DEU00013

PATIENT
  Age: 93 Year
  Sex: Female

DRUGS (6)
  1. VIOXX [Suspect]
     Route: 048
     Dates: start: 20020301, end: 20020429
  2. MIRTAZAPINE [Suspect]
     Route: 065
     Dates: end: 20020412
  3. QUETIAPINE FUMARATE [Suspect]
     Route: 065
     Dates: start: 20020301, end: 20020412
  4. PIPAMPERONE HYDROCHLORIDE [Suspect]
     Route: 065
     Dates: start: 20020301, end: 20020412
  5. FUROSEMIDE [Concomitant]
     Route: 065
     Dates: start: 20020301, end: 20020527
  6. RAMIPRIL [Concomitant]
     Route: 065
     Dates: start: 20020301, end: 20020416

REACTIONS (4)
  - DELIRIUM [None]
  - DRUG INTERACTION [None]
  - HALLUCINATIONS, MIXED [None]
  - RESTLESSNESS [None]
